FAERS Safety Report 7114074-0 (Version None)
Quarter: 2010Q4

REPORT INFORMATION
  Report Type: 
  Country: None (occurrence: None)
  Receive Date: 20101119
  Receipt Date: 20101115
  Transmission Date: 20110411
  Serious: Yes (Death, Other)
  Sender: FDA-Public Use
  Company Number: AU-CELGENEUS-008-20785-10102088

PATIENT
  Sex: Female
  Weight: 85 kg

DRUGS (7)
  1. THALOMID [Suspect]
     Route: 048
     Dates: start: 20100715, end: 20100907
  2. ZOLOFT [Concomitant]
     Indication: DEPRESSION
     Route: 048
  3. ASPIRIN [Concomitant]
     Route: 048
     Dates: start: 20100811
  4. CALTRATE [Concomitant]
     Indication: OSTEOPENIA
     Route: 048
  5. DEXAMETHASONE [Concomitant]
     Route: 048
     Dates: start: 20100811, end: 20100909
  6. PERINDOPRIL ERBUMINE [Concomitant]
     Route: 065
     Dates: start: 20080101
  7. GRANULOCYTE COLONY STIMULATING FACTOR [Concomitant]
     Indication: PROPHYLAXIS
     Route: 058

REACTIONS (4)
  - ANAEMIA [None]
  - RENAL FAILURE [None]
  - RESPIRATORY FAILURE [None]
  - SEPSIS [None]
